FAERS Safety Report 7769237-8 (Version None)
Quarter: 2011Q3

REPORT INFORMATION
  Report Type: 
  Country: None (occurrence: None)
  Receive Date: 20110922
  Receipt Date: 20110901
  Transmission Date: 20111222
  Serious: Yes (Other)
  Sender: FDA-Public Use
  Company Number: JM-MPIJNJ-2011-03973

PATIENT

DRUGS (6)
  1. VELCADE [Suspect]
     Indication: MULTIPLE MYELOMA
     Dosage: 1.3 MG/M2, CYCLIC
     Route: 058
  2. VELCADE [Suspect]
     Dosage: 1 MG/M2, UNK
     Route: 042
  3. HYDROCHLOROTHIAZIDE [Concomitant]
     Indication: HYPERTENSION
  4. DEXAMETHASONE [Concomitant]
     Indication: MULTIPLE MYELOMA
  5. THALIDOMIDE [Concomitant]
     Indication: MULTIPLE MYELOMA
     Dosage: 100 MG, UNK
  6. THALIDOMIDE [Concomitant]
     Dosage: 50 MG, UNK

REACTIONS (8)
  - MALAISE [None]
  - NEUROPATHY PERIPHERAL [None]
  - ABDOMINAL DISTENSION [None]
  - NAUSEA [None]
  - OFF LABEL USE [None]
  - CONSTIPATION [None]
  - PAIN [None]
  - VOMITING [None]
